FAERS Safety Report 7214894-8 (Version None)
Quarter: 2011Q1

REPORT INFORMATION
  Report Type: 
  Country: None (occurrence: None)
  Receive Date: 20110107
  Receipt Date: 20100424
  Transmission Date: 20110831
  Serious: No
  Sender: FDA-Public Use
  Company Number: A0856775A

PATIENT
  Age: 50 Year
  Sex: Male

DRUGS (1)
  1. LOVAZA [Suspect]
     Dosage: 4CAP PER DAY
     Route: 065
     Dates: start: 20100101

REACTIONS (1)
  - CHEST DISCOMFORT [None]
